FAERS Safety Report 14413077 (Version 1)
Quarter: 2018Q1

REPORT INFORMATION
  Report Type: Report from Study
  Country: GB (occurrence: GB)
  Receive Date: 20180119
  Receipt Date: 20180119
  Transmission Date: 20180509
  Serious: Yes (Other)
  Sender: FDA-Public Use
  Company Number: GB-TEVA-2018-GB-845960

PATIENT
  Age: 38 Year
  Sex: Female

DRUGS (3)
  1. SERTRALINE [Concomitant]
     Active Substance: SERTRALINE HYDROCHLORIDE
  2. RENADINE (SIC) [Concomitant]
  3. COPAXONE [Suspect]
     Active Substance: GLATIRAMER ACETATE
     Dosage: 20 MILLIGRAM/MILLILITERS DAILY;
     Route: 058

REACTIONS (9)
  - Fracture [Unknown]
  - Vision blurred [Unknown]
  - Fatigue [Unknown]
  - Malaise [Unknown]
  - Balance disorder [Unknown]
  - Pain [Unknown]
  - Bedridden [Unknown]
  - Fall [Unknown]
  - Influenza like illness [Unknown]

NARRATIVE: CASE EVENT DATE: 201711
